FAERS Safety Report 15422345 (Version 1)
Quarter: 2018Q3

REPORT INFORMATION
  Report Type: Spontaneous
  Country: US (occurrence: US)
  Receive Date: 20180924
  Receipt Date: 20180924
  Transmission Date: 20181010
  Serious: No
  Sender: FDA-Public Use
  Company Number: US-BAUSCH-BL-2017-028643

PATIENT
  Age: 76 Year
  Sex: Male
  Weight: 84.9 kg

DRUGS (1)
  1. MOVIPREP [Suspect]
     Active Substance: ASCORBIC ACID\POLYETHYLENE GLYCOL 3350\POTASSIUM CHLORIDE\SODIUM ASCORBATE\SODIUM CHLORIDE\SODIUM SULFATE
     Indication: COLONOSCOPY
     Dosage: FIRST DOSE ON 01/OCT/2017 AND SECOND DOSE ON TWELVE HOURS LATER
     Route: 048
     Dates: start: 20171001, end: 201710

REACTIONS (2)
  - Product taste abnormal [Unknown]
  - Product deposit [Unknown]

NARRATIVE: CASE EVENT DATE: 201710
